FAERS Safety Report 18014297 (Version 1)
Quarter: 2020Q3

REPORT INFORMATION
  Report Type: Spontaneous
  Country: US (occurrence: US)
  Receive Date: 20200713
  Receipt Date: 20200713
  Transmission Date: 20201103
  Serious: No
  Sender: FDA-Public Use
  Company Number: None

PATIENT
  Age: 36 Year
  Sex: Female
  Weight: 87.75 kg

DRUGS (1)
  1. ETONOGESTREL/ERHINYL ESTRADIOL VAGINAL RING [Suspect]
     Active Substance: ETHINYL ESTRADIOL\ETONOGESTREL
     Indication: CONTRACEPTION
     Dosage: ?          QUANTITY:1 RING;OTHER FREQUENCY:1 FOR 3 WEEKS;?
     Route: 067
     Dates: start: 20200101

REACTIONS (10)
  - Madarosis [None]
  - Anxiety [None]
  - Anger [None]
  - Headache [None]
  - Depression [None]
  - Mood altered [None]
  - Insomnia [None]
  - Uterine pain [None]
  - Back pain [None]
  - Breast pain [None]

NARRATIVE: CASE EVENT DATE: 20200101
